FAERS Safety Report 6617614-0 (Version None)
Quarter: 2010Q1

REPORT INFORMATION
  Report Type: 
  Country: None (occurrence: None)
  Receive Date: 20100308
  Receipt Date: 20100223
  Transmission Date: 20100710
  Serious: Yes (Hospitalization)
  Sender: FDA-Public Use
  Company Number: NL-MEDIMMUNE-MEDI-0010645

PATIENT
  Sex: Male

DRUGS (2)
  1. SYNAGIS [Suspect]
     Route: 030
     Dates: start: 20100126, end: 20100223
  2. SYNAGIS [Suspect]
     Route: 030
     Dates: start: 20100223

REACTIONS (1)
  - EPIDIDYMITIS [None]
